FAERS Safety Report 5246442-6 (Version None)
Quarter: 2007Q1

REPORT INFORMATION
  Report Type: 
  Country: None (occurrence: None)
  Receive Date: 20070216
  Receipt Date: 20070207
  Transmission Date: 20070707
  Serious: Yes (Death)
  Sender: FDA-Public Use
  Company Number: WAES 0612GBR00080

PATIENT
  Age: 71 Year
  Sex: Male

DRUGS (7)
  1. ZOCOR [Suspect]
     Indication: CORONARY ARTERY DISEASE
     Dosage: 20 MG/DAILY PO
     Route: 048
     Dates: start: 20010315
  2. FOLIC ACID [Suspect]
     Indication: CORONARY ARTERY DISEASE
     Dosage: PO
     Route: 048
     Dates: start: 20010315
  3. CYANOCOBALAMIN [Suspect]
     Indication: CORONARY ARTERY DISEASE
     Dosage: 1 MG/DAILY PO
     Route: 048
     Dates: start: 20010315
  4. ASPIRIN [Concomitant]
  5. ATENOLOL [Concomitant]
  6. CARBOCYSTEINE [Concomitant]
  7. TERBUTALINE SULFATE [Concomitant]

REACTIONS (1)
  - INTERSTITIAL LUNG DISEASE [None]
